FAERS Safety Report 7582747-1 (Version None)
Quarter: 2011Q2

REPORT INFORMATION
  Report Type: 
  Country: None (occurrence: None)
  Receive Date: 20110630
  Receipt Date: 20110609
  Transmission Date: 20111010
  Serious: No
  Sender: FDA-Public Use
  Company Number: US-B.I. PHARMACEUTICALS,INC./RIDGEFIELD-2010-BP-06324BP

PATIENT
  Sex: Female
  Weight: 81.65 kg

DRUGS (1)
  1. MIRAPEX [Suspect]
     Indication: RESTLESS LEGS SYNDROME
     Route: 048
     Dates: start: 20080618, end: 20100301

REACTIONS (7)
  - OBSESSIVE-COMPULSIVE DISORDER [None]
  - PAIN [None]
  - WEIGHT INCREASED [None]
  - STRESS [None]
  - EMOTIONAL DISTRESS [None]
  - HYPERPHAGIA [None]
  - PATHOLOGICAL GAMBLING [None]
